FAERS Safety Report 15412580 (Version 3)
Quarter: 2018Q4

REPORT INFORMATION
  Report Type: Spontaneous
  Country: JP (occurrence: JP)
  Receive Date: 20180921
  Receipt Date: 20181005
  Transmission Date: 20190204
  Serious: Yes (Hospitalization, Other)
  Sender: FDA-Public Use
  Company Number: JP-GLAXOSMITHKLINE-JP2018JPN161273

PATIENT
  Age: 78 Year
  Sex: Female
  Weight: 70 kg

DRUGS (17)
  1. JU-KAMA [Concomitant]
     Active Substance: MAGNESIUM OXIDE
     Indication: CONSTIPATION
     Dosage: 0.5 G, TID
     Route: 048
  2. BAYASPIRIN TABLETS [Concomitant]
     Indication: ISCHAEMIC CEREBRAL INFARCTION
     Dosage: 100 MG, QD
     Route: 048
  3. CADUET NO.3 [Concomitant]
     Indication: HYPERCHOLESTEROLAEMIA
  4. LOXONIN TABLETS [Concomitant]
     Active Substance: LOXOPROFEN SODIUM
     Indication: OSTEOARTHRITIS
     Dosage: 60 MG, TID
     Route: 048
  5. GENINAX [Suspect]
     Active Substance: GARENOXACIN MESYLATE
     Indication: PNEUMONIA
     Dosage: 400 MG, QD
     Route: 048
     Dates: start: 20180828, end: 20180830
  6. MUCODYNE TABLETS [Concomitant]
     Indication: PRODUCTIVE COUGH
     Dosage: 500 MG, TID
     Route: 048
     Dates: end: 20180820
  7. GLACTIV [Concomitant]
     Active Substance: SITAGLIPTIN
     Indication: TYPE 2 DIABETES MELLITUS
     Dosage: 50 MG, QD
     Route: 048
  8. VALTREX [Suspect]
     Active Substance: VALACYCLOVIR HYDROCHLORIDE
     Indication: HERPES ZOSTER
     Dosage: 1000 MG, TID
     Route: 048
     Dates: start: 20180828, end: 20180904
  9. ARTIST TABLETS [Concomitant]
     Active Substance: CARVEDILOL
     Indication: HYPERTENSION
     Dosage: 10 MG, QD
     Route: 048
  10. ARTIST TABLETS [Concomitant]
     Active Substance: CARVEDILOL
     Indication: HYPERCHOLESTEROLAEMIA
  11. PARIET TABLET [Concomitant]
     Indication: GASTROOESOPHAGEAL REFLUX DISEASE
     Dosage: 10 MG, QD
     Route: 048
  12. MYONAL TABLETS [Concomitant]
     Indication: CERVICOBRACHIAL SYNDROME
     Dosage: 50 MG, TID
     Route: 048
  13. LANTUS SOLOSTAR [Concomitant]
     Active Substance: INSULIN GLARGINE
     Indication: TYPE 2 DIABETES MELLITUS
     Dosage: 4 IU, QD
     Route: 058
  14. KARY UNI [Concomitant]
     Active Substance: PIRENOXINE
     Indication: CATARACT
     Dosage: 1-2 DROPS, TID
     Route: 031
  15. HYALEIN OPHTHALMIC SOLUTION [Concomitant]
     Indication: XEROPHTHALMIA
     Dosage: 1 DROP, QID
     Route: 031
  16. CADUET NO.3 [Concomitant]
     Indication: HYPERTENSION
     Dosage: 1 DF, QD
     Route: 048
  17. DEPAS TABLETS [Concomitant]
     Active Substance: ETIZOLAM
     Indication: SPINAL OSTEOARTHRITIS
     Dosage: 0.5 MG, TID
     Route: 048

REACTIONS (8)
  - Gait disturbance [Recovered/Resolved]
  - Nasopharyngeal reflux [Not Recovered/Not Resolved]
  - Hypophagia [Recovered/Resolved]
  - Vomiting [Recovering/Resolving]
  - Dyspepsia [Recovering/Resolving]
  - Acute kidney injury [Recovered/Resolved]
  - Vertigo [Recovered/Resolved]
  - Nausea [Recovered/Resolved]

NARRATIVE: CASE EVENT DATE: 201809
